FAERS Safety Report 4474513-0 (Version None)
Quarter: 2004Q4

REPORT INFORMATION
  Report Type: 
  Country: None (occurrence: None)
  Receive Date: 20041008
  Receipt Date: 20040921
  Transmission Date: 20050328
  Serious: Yes (Death, Hospitalization)
  Sender: FDA-Public Use
  Company Number: US_0406103481

PATIENT
  Age: 69 Year
  Sex: Male
  Weight: 101 kg

DRUGS (7)
  1. GEMCITABINE HYDROCHLORIDE-IV (GEMCITABINE) [Suspect]
     Indication: NON-SMALL CELL LUNG CANCER
     Dates: start: 20040303
  2. CARBOPLATIN [Suspect]
     Indication: NON-SMALL CELL LUNG CANCER
     Dates: start: 20040303
  3. ALLEGRA [Concomitant]
  4. COENZYME Q10 [Concomitant]
  5. AMIODARONE [Concomitant]
  6. XANAX(ALPRAZOLAM DUM) [Concomitant]
  7. MULTI-VITAMINS [Concomitant]

REACTIONS (5)
  - ACUTE RESPIRATORY DISTRESS SYNDROME [None]
  - ALPHA HAEMOLYTIC STREPTOCOCCAL INFECTION [None]
  - KLEBSIELLA INFECTION [None]
  - POST PROCEDURAL COMPLICATION [None]
  - SEPSIS [None]
